FAERS Safety Report 7581360-X (Version None)
Quarter: 2011Q2

REPORT INFORMATION
  Report Type: 
  Country: None (occurrence: None)
  Receive Date: 20110629
  Receipt Date: 20110627
  Transmission Date: 20111010
  Serious: Yes (Other)
  Sender: FDA-Public Use
  Company Number: CA-ABBOTT-10P-028-0690019-00

PATIENT
  Sex: Male
  Weight: 64.468 kg

DRUGS (12)
  1. HUMIRA [Suspect]
     Route: 058
     Dates: start: 20090120, end: 20101123
  2. APOLHYDRO [Concomitant]
     Indication: HEADACHE
     Route: 048
     Dates: start: 20101101
  3. ACETAMINOPHEN [Concomitant]
     Indication: PAIN
     Route: 048
  4. LASOPRAZOLE [Concomitant]
     Indication: RELAXATION THERAPY
     Route: 048
  5. CRESTOR [Concomitant]
     Indication: VEIN DISORDER
  6. HUMIRA [Suspect]
     Indication: PSORIASIS
     Route: 058
     Dates: start: 20050101
  7. PERINDOPRIL ERBUMINE [Concomitant]
     Indication: ANTICOAGULANT THERAPY
     Route: 048
  8. NOVAMILOR [Concomitant]
     Indication: PRODUCT USED FOR UNKNOWN INDICATION
     Dosage: 5-50 MG DAILY
  9. PLAVIX [Concomitant]
     Indication: ANTICOAGULANT THERAPY
     Route: 048
  10. ZOPICLONE [Concomitant]
     Indication: INSOMNIA
     Route: 048
  11. METFORMIN HCL [Concomitant]
     Indication: BLOOD GLUCOSE ABNORMAL
     Route: 048
  12. LARAZEN [Concomitant]
     Indication: RELAXATION THERAPY
     Route: 048

REACTIONS (2)
  - CEREBROVASCULAR ACCIDENT [None]
  - VENOUS OCCLUSION [None]
